FAERS Safety Report 7843357-1 (Version None)
Quarter: 2011Q4

REPORT INFORMATION
  Report Type: 
  Country: None (occurrence: None)
  Receive Date: 20111025
  Receipt Date: 20111020
  Transmission Date: 20120403
  Serious: Yes (Other)
  Sender: FDA-Public Use
  Company Number: IN-PFIZER INC-2011241849

PATIENT
  Age: 35 Year
  Sex: Male
  Weight: 50 kg

DRUGS (1)
  1. PIROXICAM [Suspect]
     Indication: BACK PAIN
     Dosage: 2 ML, UNK
     Route: 030
     Dates: start: 20111007, end: 20111007

REACTIONS (9)
  - QUADRIPARESIS [None]
  - ASTHENIA [None]
  - CHILLS [None]
  - DYSPHAGIA [None]
  - ANAPHYLACTIC SHOCK [None]
  - SENSORY LOSS [None]
  - TACHYCARDIA [None]
  - APHASIA [None]
  - RESPIRATORY RATE INCREASED [None]
